FAERS Safety Report 8965324 (Version 1)
Quarter: 2012Q4

REPORT INFORMATION
  Report Type: 
  Country: US (occurrence: US)
  Receive Date: 20121213
  Receipt Date: 20121213
  Transmission Date: 20130627
  Serious: No
  Sender: FDA-Public Use
  Company Number: US-VERTEX PHARMACEUTICALS INC.-2012-026050

PATIENT
  Age: 52 Year
  Sex: Male
  Weight: 109 kg

DRUGS (8)
  1. VX-950 (TELAPREVIR) [Suspect]
     Indication: HEPATITIS C
     Dosage: 750 mg, tid
     Route: 048
     Dates: start: 2012
  2. PEGASYS [Concomitant]
     Indication: HEPATITIS C
     Dosage: 180 ?g, qw
     Route: 058
     Dates: start: 2012
  3. RIBASPHERE [Concomitant]
     Indication: HEPATITIS C
     Dosage: 600 mg, bid
     Dates: start: 2012
  4. GLYBURIDE [Concomitant]
     Dosage: UNK, qd
  5. CELEXA                             /00582602/ [Concomitant]
     Dosage: UNK, qd
  6. METFORMIN HCL ER [Concomitant]
     Dosage: UNK, bid
  7. CENTRUM                            /02217401/ [Concomitant]
  8. MULTIVITAMIN                       /00097801/ [Concomitant]
     Dosage: UNK, qd

REACTIONS (2)
  - Rash [Unknown]
  - Urticaria [Unknown]
